FAERS Safety Report 22098600 (Version 1)
Quarter: 2023Q1

REPORT INFORMATION
  Report Type: Spontaneous
  Country: US (occurrence: None)
  Receive Date: 20230314
  Receipt Date: 20230314
  Transmission Date: 20230417
  Serious: Yes (Life-Threatening, Hospitalization, Other)
  Sender: FDA-Public Use
  Company Number: None

PATIENT
  Age: 45 Year
  Sex: Female
  Weight: 138 kg

DRUGS (2)
  1. PACLITAXEL [Suspect]
     Active Substance: PACLITAXEL
     Indication: Cervix carcinoma
     Route: 041
     Dates: start: 20230303, end: 20230303
  2. BEVACIZUMAB-AWWB [Concomitant]
     Active Substance: BEVACIZUMAB-AWWB
     Dates: start: 20230303, end: 20230303

REACTIONS (6)
  - Chest discomfort [None]
  - Dyspnoea [None]
  - Pallor [None]
  - Lethargy [None]
  - Oxygen saturation decreased [None]
  - Depressed level of consciousness [None]

NARRATIVE: CASE EVENT DATE: 20230303
